FAERS Safety Report 9465066 (Version 1)
Quarter: 2013Q3

REPORT INFORMATION
  Report Type: Spontaneous
  Country: US (occurrence: US)
  Receive Date: 20130819
  Receipt Date: 20130819
  Transmission Date: 20140515
  Serious: No
  Sender: FDA-Public Use
  Company Number: US-TEVA-426707USA

PATIENT
  Age: 30 Year
  Sex: Female
  Weight: 67.65 kg

DRUGS (2)
  1. PARAGARD 380A [Suspect]
     Indication: CONTRACEPTION
     Route: 015
     Dates: start: 20130611, end: 20130703
  2. PARAGARD 380A [Suspect]
     Route: 015
     Dates: start: 20130723, end: 20130807

REACTIONS (1)
  - Device expulsion [Recovered/Resolved]
